FAERS Safety Report 11656596 (Version 2)
Quarter: 2015Q4

REPORT INFORMATION
  Report Type: Spontaneous
  Country: US (occurrence: US)
  Receive Date: 20151023
  Receipt Date: 20151028
  Transmission Date: 20160304
  Serious: No
  Sender: FDA-Public Use
  Company Number: US-PFIZER INC-2015344325

PATIENT
  Sex: Male

DRUGS (1)
  1. NITROSTAT [Suspect]
     Active Substance: NITROGLYCERIN
     Dosage: UNK

REACTIONS (1)
  - No adverse event [Unknown]
